FAERS Safety Report 4775436-X (Version None)
Quarter: 2005Q3

REPORT INFORMATION
  Report Type: 
  Country: None (occurrence: None)
  Receive Date: 20050921
  Receipt Date: 20050921
  Transmission Date: 20060218
  Serious: Yes (Hospitalization)
  Sender: FDA-Public Use
  Company Number: None

PATIENT
  Sex: Male

DRUGS (12)
  1. MEGESTROL SUSPENSION 400 MG [Suspect]
     Indication: APPETITE DISORDER
     Dosage: 400 MG DAILY PO
     Route: 048
  2. NPH INSULIN [Concomitant]
  3. MIRTAZAPINE [Concomitant]
  4. FELODIPINE [Concomitant]
  5. THIAMINE [Concomitant]
  6. OXYBUTYNIN [Concomitant]
  7. OMEPRAZOLE [Concomitant]
  8. LACTINEX [Concomitant]
  9. FERROUS SULFATE [Concomitant]
  10. FLAGYL [Concomitant]
  11. FLEET ENEMA [Concomitant]
  12. GATIFLOXACIN [Concomitant]

REACTIONS (1)
  - DEEP VEIN THROMBOSIS [None]
